FAERS Safety Report 26000058 (Version 1)
Quarter: 2025Q4

REPORT INFORMATION
  Report Type: Spontaneous
  Country: EU (occurrence: EU)
  Receive Date: 20251105
  Receipt Date: 20251105
  Transmission Date: 20260119
  Serious: Yes (Other)
  Sender: RANBAXY
  Company Number: EU-AFSSAPS-LL2025001291

PATIENT
  Age: 23 Year
  Sex: Female

DRUGS (2)
  1. SERTRALINE [Suspect]
     Active Substance: SERTRALINE HYDROCHLORIDE
     Indication: Inflammation
     Dosage: 200 MILLIGRAM
     Route: 048
     Dates: start: 20220615, end: 20250629
  2. KETOPROFEN [Suspect]
     Active Substance: KETOPROFEN
     Indication: Inflammation
     Dosage: 200 MILLIGRAM
     Route: 048
     Dates: start: 20250624, end: 20250629

REACTIONS (2)
  - Anaemia [Not Recovered/Not Resolved]
  - Haematoma [Not Recovered/Not Resolved]
